FAERS Safety Report 4928993-4 (Version None)
Quarter: 2006Q1

REPORT INFORMATION
  Report Type: 
  Country: None (occurrence: None)
  Receive Date: 20060301
  Receipt Date: 20050831
  Transmission Date: 20060701
  Serious: Yes (Hospitalization)
  Sender: FDA-Public Use
  Company Number: 2005AP05109

PATIENT
  Age: 564 Month
  Sex: Female
  Weight: 40.8 kg

DRUGS (18)
  1. IRESSA [Suspect]
     Indication: LUNG ADENOCARCINOMA
     Route: 048
     Dates: start: 20050625
  2. NAUZELIN [Suspect]
     Indication: NAUSEA
     Route: 048
     Dates: start: 20050812, end: 20050928
  3. NOVAMIN [Suspect]
     Indication: NAUSEA
     Route: 048
     Dates: start: 20050831, end: 20050928
  4. RADIATION [Suspect]
     Dosage: 36GY TO THIGH BONE
     Dates: start: 20040602, end: 20040617
  5. RADIATION [Suspect]
     Dosage: 35GY TO THE WHOLE BRAIN
     Dates: start: 20040606, end: 20040624
  6. UNKNOWN DRUG [Concomitant]
     Indication: CONSTIPATION
     Route: 048
     Dates: start: 20050104, end: 20051020
  7. LENDORMIN D [Concomitant]
     Indication: INSOMNIA
     Route: 048
     Dates: start: 20050730, end: 20051006
  8. PREDONINE [Concomitant]
     Indication: ANOREXIA
     Route: 048
     Dates: start: 20050808, end: 20050929
  9. PARIET [Concomitant]
     Indication: NAUSEA
     Route: 048
     Dates: start: 20050812
  10. GASMOTIN [Concomitant]
     Indication: ABDOMINAL DISTENSION
     Route: 048
     Dates: start: 20050901, end: 20051020
  11. GASMOTIN [Concomitant]
     Route: 042
  12. DEPAS [Concomitant]
     Indication: ANXIETY
     Route: 048
     Dates: start: 20050916, end: 20050928
  13. LOPEMIN [Concomitant]
     Route: 048
  14. GEMZAR [Concomitant]
  15. GEMCITABINE [Concomitant]
     Dosage: FOUR COURSES ADMINSTERED
     Dates: start: 20040530, end: 20040925
  16. CARBOPLATIN [Concomitant]
     Dosage: FOUR COURSES ADMINSTERED
     Dates: start: 20040530, end: 20040925
  17. CARBOPLATIN [Concomitant]
     Dosage: FOUR COURSES ADMINSTERED
     Dates: start: 20041213, end: 20050409
  18. PACLITAXEL [Concomitant]
     Dosage: FOUR COURSES ADMINSTERED
     Dates: start: 20041213, end: 20050409

REACTIONS (13)
  - CHEST PAIN [None]
  - DEPRESSED LEVEL OF CONSCIOUSNESS [None]
  - DEPRESSION [None]
  - EXTRAPYRAMIDAL DISORDER [None]
  - GAZE PALSY [None]
  - LETHARGY [None]
  - MENTAL IMPAIRMENT [None]
  - MENTAL STATUS CHANGES [None]
  - METASTASES TO CENTRAL NERVOUS SYSTEM [None]
  - MUSCLE TWITCHING [None]
  - NAUSEA [None]
  - SPEECH DISORDER [None]
  - VOMITING [None]
